FAERS Safety Report 4699620-9 (Version None)
Quarter: 2005Q2

REPORT INFORMATION
  Report Type: 
  Country: None (occurrence: None)
  Receive Date: 20050623
  Receipt Date: 20050610
  Transmission Date: 20051028
  Serious: Yes (Hospitalization)
  Sender: FDA-Public Use
  Company Number: 2005087932

PATIENT
  Age: 50 Year
  Sex: Female
  Weight: 76 kg

DRUGS (2)
  1. AROMASIN [Suspect]
     Indication: BREAST CANCER
     Dosage: 25 MG (25 MG,), ORAL
     Route: 048
     Dates: start: 20030122
  2. OMEPRAZOLE [Concomitant]

REACTIONS (3)
  - ASTHENIA [None]
  - LIGAMENT DISORDER [None]
  - TIBIA FRACTURE [None]
